FAERS Safety Report 14008873 (Version 1)
Quarter: 2017Q3

REPORT INFORMATION
  Report Type: Spontaneous
  Country: PH (occurrence: PH)
  Receive Date: 20170925
  Receipt Date: 20170925
  Transmission Date: 20171128
  Serious: Yes (Hospitalization)
  Sender: FDA-Public Use
  Company Number: PH-ASTELLAS-2017US037773

PATIENT
  Age: 69 Year
  Sex: Male

DRUGS (4)
  1. FLUTAMIDE. [Concomitant]
     Active Substance: FLUTAMIDE
     Indication: PROSTATE CANCER
     Dosage: UNK UNK, UNKNOWN FREQ.
     Route: 065
  2. XTANDI [Suspect]
     Active Substance: ENZALUTAMIDE
     Indication: PROSTATE CANCER
     Route: 048
     Dates: start: 20170909
  3. XTANDI [Suspect]
     Active Substance: ENZALUTAMIDE
     Route: 048
     Dates: start: 20170911
  4. XTANDI [Suspect]
     Active Substance: ENZALUTAMIDE
     Route: 048
     Dates: start: 20170914

REACTIONS (5)
  - Decreased appetite [Recovering/Resolving]
  - Fatigue [Recovering/Resolving]
  - Blood sodium decreased [Unknown]
  - Dehydration [Not Recovered/Not Resolved]
  - Prescribed underdose [Unknown]

NARRATIVE: CASE EVENT DATE: 20170914
